FAERS Safety Report 15504576 (Version 7)
Quarter: 2020Q1

REPORT INFORMATION
  Report Type: Spontaneous
  Country: US (occurrence: US)
  Receive Date: 20181016
  Receipt Date: 20200224
  Transmission Date: 20200409
  Serious: Yes (Other)
  Sender: FDA-Public Use
  Company Number: US-SA-2018SA275940

PATIENT
  Age: 66 Year
  Sex: Female

DRUGS (13)
  1. HYDROXYZINE HYDROCHLORIDE. [Concomitant]
     Active Substance: HYDROXYZINE HYDROCHLORIDE
     Indication: DERMATITIS ATOPIC
  2. HYDROXYZINE PAMOATE. [Concomitant]
     Active Substance: HYDROXYZINE PAMOATE
     Indication: PRURITUS
     Dosage: 1 DF, QID PRN
     Route: 048
  3. DUPIXENT [Suspect]
     Active Substance: DUPILUMAB
     Dosage: 300 MG, EVERY OTHER WEEK
     Route: 058
     Dates: start: 20180809
  4. GABAPENTIN. [Concomitant]
     Active Substance: GABAPENTIN
     Dosage: UNK
  5. LEVOTHYROXINE. [Concomitant]
     Active Substance: LEVOTHYROXINE
     Dosage: UNK
  6. OLMESARTAN [Concomitant]
     Active Substance: OLMESARTAN
  7. PREMARIN [Concomitant]
     Active Substance: ESTROGENS, CONJUGATED
     Dosage: UNK
  8. HYDROXYZINE HYDROCHLORIDE. [Concomitant]
     Active Substance: HYDROXYZINE HYDROCHLORIDE
     Indication: PRURITUS
     Dosage: 1 DF QID PRN
  9. EUCRISA [Concomitant]
     Active Substance: CRISABOROLE
     Indication: DERMATITIS
  10. DUPIXENT [Suspect]
     Active Substance: DUPILUMAB
     Indication: DERMATITIS ATOPIC
     Dosage: UNK UNK, OTHER
     Route: 058
     Dates: start: 201803
  11. AMITRIPTYLIN [Concomitant]
     Active Substance: AMITRIPTYLINE
     Dosage: UNK
  12. TRIAMCINOLONE [Concomitant]
     Active Substance: TRIAMCINOLONE
     Dosage: APPLIED TOPICALLY TO ARMS, LEGS AND BACK 2 TIMES A DAY
     Route: 061
  13. LOSARTAN. [Concomitant]
     Active Substance: LOSARTAN
     Dosage: UNK

REACTIONS (27)
  - Vision blurred [Unknown]
  - Product dose omission [Unknown]
  - Skin discolouration [Unknown]
  - Skin plaque [Unknown]
  - Eye pruritus [Unknown]
  - Joint swelling [Unknown]
  - Lentigo [Unknown]
  - Skin exfoliation [Unknown]
  - Dry skin [Unknown]
  - Ocular hyperaemia [Unknown]
  - Blood pressure abnormal [Unknown]
  - Macule [Unknown]
  - Porokeratosis [Unknown]
  - Erythema [Unknown]
  - Dermatitis atopic [Unknown]
  - Erythema [Unknown]
  - Pruritus [Unknown]
  - Therapeutic response decreased [Unknown]
  - Peripheral swelling [Unknown]
  - Seborrhoeic keratosis [Unknown]
  - Papule [Unknown]
  - Scab [Unknown]
  - Vascular injury [Unknown]
  - Fall [Unknown]
  - Purpura [Unknown]
  - Wound [Unknown]
  - Rash erythematous [Unknown]

NARRATIVE: CASE EVENT DATE: 20181003
